FAERS Safety Report 9438366 (Version 1)
Quarter: 2013Q3

REPORT INFORMATION
  Report Type: Spontaneous
  Country: IT (occurrence: IT)
  Receive Date: 20130802
  Receipt Date: 20130802
  Transmission Date: 20140515
  Serious: Yes (Death, Other)
  Sender: FDA-Public Use
  Company Number: IT-BAXTER-2013BAX030145

PATIENT
  Age: 82 Year
  Sex: Male

DRUGS (7)
  1. FEIBA [Suspect]
     Indication: ACQUIRED HAEMOPHILIA
     Route: 065
  2. METHYLPREDNISOLONE [Suspect]
     Indication: ACQUIRED HAEMOPHILIA
  3. NOVOSEVEN [Suspect]
     Indication: ACQUIRED HAEMOPHILIA
     Dosage: 90 IG/KG
  4. UMAN COMPLEX DI [Suspect]
     Indication: ACQUIRED HAEMOPHILIA
  5. DEXAMETHASONE [Suspect]
     Indication: IMMUNOSUPPRESSANT DRUG THERAPY
     Dosage: 8 MG/DAY
  6. CARVEDILOL [Concomitant]
     Indication: HYPERTENSION
  7. FUROSEMIDE [Concomitant]
     Indication: HYPERTENSION

REACTIONS (3)
  - Death [Fatal]
  - Drug ineffective [Not Recovered/Not Resolved]
  - Haemorrhage [Not Recovered/Not Resolved]
